FAERS Safety Report 8912184 (Version 2)
Quarter: 2013Q1

REPORT INFORMATION
  Report Type: Not Available
  Country: DK (occurrence: DK)
  Receive Date: 20121116
  Receipt Date: 20130301
  Transmission Date: 20140127
  Serious: Yes (Hospitalization)
  Sender: FDA-Public Use
  Company Number: DK-NAPPMUNDI-GBR-2012-0012037

PATIENT
  Age: 90 Year
  Sex: Male
  Weight: 60 kg

DRUGS (5)
  1. OXYCONTIN [Suspect]
     Indication: PAIN
     Dosage: 10 MG, DAILY
     Route: 048
     Dates: start: 20121024, end: 20121027
  2. OXYNORM [Suspect]
     Indication: PAIN
     Dosage: 5 MG, UNK
     Route: 048
     Dates: start: 20121024
  3. PRIMPERAN [Concomitant]
     Indication: NAUSEA
     Dosage: UNK
     Route: 054
     Dates: start: 201209
  4. PREDNISOLON [Concomitant]
     Indication: NEOPLASM MALIGNANT
     Route: 065
     Dates: start: 201209
  5. LANSOPRAZOL [Concomitant]
     Indication: GASTRIC PH DECREASED
     Dosage: UNK
     Dates: start: 2010

REACTIONS (4)
  - Delirium [Recovered/Resolved]
  - Morbid thoughts [Recovered/Resolved]
  - Confusional state [Recovered/Resolved]
  - Anxiety [Recovered/Resolved]
